FAERS Safety Report 4754414-0 (Version None)
Quarter: 2005Q3

REPORT INFORMATION
  Report Type: 
  Country: None (occurrence: None)
  Receive Date: 20050829
  Receipt Date: 20040504
  Transmission Date: 20060218
  Serious: Yes (Hospitalization)
  Sender: FDA-Public Use
  Company Number: FR-BOEHRINGER INGELHEIM PHARMACEUTICALS, INC.-2004-FF-00291FF

PATIENT
  Age: 57 Year
  Sex: Female

DRUGS (6)
  1. BRONCHODUAL [Suspect]
     Indication: CHRONIC OBSTRUCTIVE PULMONARY DISEASE
     Dosage: 3 PUFFS DAILY
     Route: 055
  2. COMBIVENT [Suspect]
     Indication: CHRONIC OBSTRUCTIVE PULMONARY DISEASE
     Dosage: 2 PUFFS THREE TIMES DAILY
     Route: 055
  3. ATARAX [Concomitant]
     Route: 048
  4. SOLU-MEDROL [Concomitant]
     Route: 048
  5. IMOVANE [Concomitant]
     Route: 048
  6. KETEK [Concomitant]
     Route: 048

REACTIONS (8)
  - CERVICAL SPINAL STENOSIS [None]
  - EPISTAXIS [None]
  - HYPERTHERMIA [None]
  - MUSCULAR WEAKNESS [None]
  - MYOPATHY [None]
  - PARAPARESIS [None]
  - SPINAL CORD COMPRESSION [None]
  - THROMBOCYTOPENIA [None]
